FAERS Safety Report 25314643 (Version 1)
Quarter: 2025Q2

REPORT INFORMATION
  Report Type: Spontaneous
  Country: CA (occurrence: CA)
  Receive Date: 20250514
  Receipt Date: 20250514
  Transmission Date: 20250717
  Serious: Yes (Other)
  Sender: NOVO NORDISK
  Company Number: CA-NOVOPROD-1419316

PATIENT

DRUGS (3)
  1. SAXENDA [Suspect]
     Active Substance: LIRAGLUTIDE
     Indication: Product used for unknown indication
  2. SAXENDA [Suspect]
     Active Substance: LIRAGLUTIDE
  3. SAXENDA [Suspect]
     Active Substance: LIRAGLUTIDE

REACTIONS (1)
  - Surgery [Unknown]
